FAERS Safety Report 5400399-3 (Version None)
Quarter: 2007Q3

REPORT INFORMATION
  Report Type: 
  Country: None (occurrence: None)
  Receive Date: 20070730
  Receipt Date: 20070720
  Transmission Date: 20080115
  Serious: Yes (Death, Hospitalization)
  Sender: FDA-Public Use
  Company Number: B0479405B

PATIENT
  Sex: Female
  Weight: 77 kg

DRUGS (1)
  1. TOPOTECAN [Suspect]
     Indication: OVARIAN CANCER
     Dosage: 7.76MG WEEKLY
     Route: 042
     Dates: start: 20070619

REACTIONS (4)
  - GENERAL PHYSICAL HEALTH DETERIORATION [None]
  - HOSPITALISATION [None]
  - MALAISE [None]
  - MULTI-ORGAN FAILURE [None]
